FAERS Safety Report 5566366-4 (Version None)
Quarter: 2007Q4

REPORT INFORMATION
  Report Type: 
  Country: None (occurrence: None)
  Receive Date: 20071219
  Receipt Date: 20071210
  Transmission Date: 20080405
  Serious: Yes (Hospitalization)
  Sender: FDA-Public Use
  Company Number: AU-AMGEN-QUU256180

PATIENT
  Sex: Female
  Weight: 79 kg

DRUGS (4)
  1. NEULASTA [Suspect]
     Indication: CHEMOTHERAPY
     Route: 065
     Dates: start: 20070711
  2. TAXOTERE [Concomitant]
     Dates: start: 20070710
  3. ADRIAMYCIN PFS [Concomitant]
     Dates: start: 20070710
  4. CYCLOPHOSPHAMIDE [Concomitant]
     Dates: start: 20070710

REACTIONS (2)
  - FEBRILE NEUTROPENIA [None]
  - THERAPEUTIC RESPONSE DECREASED [None]
